FAERS Safety Report 5593629-9 (Version None)
Quarter: 2008Q1

REPORT INFORMATION
  Report Type: 
  Country: None (occurrence: None)
  Receive Date: 20080116
  Receipt Date: 20080110
  Transmission Date: 20080703
  Serious: Yes (Other)
  Sender: FDA-Public Use
  Company Number: FR-RANBAXY-2008RR-12518

PATIENT

DRUGS (1)
  1. ISOTRETINOIN [Suspect]

REACTIONS (1)
  - COLITIS COLLAGENOUS [None]
